FAERS Safety Report 7796709-2 (Version None)
Quarter: 2011Q4

REPORT INFORMATION
  Report Type: 
  Country: None (occurrence: None)
  Receive Date: 20111005
  Receipt Date: 20110923
  Transmission Date: 20120403
  Serious: Yes (Hospitalization)
  Sender: FDA-Public Use
  Company Number: CA-JNJFOC-20110910950

PATIENT
  Sex: Female
  Weight: 104.2 kg

DRUGS (3)
  1. REMICADE [Suspect]
     Route: 042
     Dates: start: 20110923
  2. REMICADE [Suspect]
     Route: 042
     Dates: start: 20000101
  3. REMICADE [Suspect]
     Indication: RHEUMATOID ARTHRITIS
     Route: 042
     Dates: start: 20110301

REACTIONS (2)
  - MALAISE [None]
  - MUSCLE ABSCESS [None]
